FAERS Safety Report 22181355 (Version 2)
Quarter: 2023Q2

REPORT INFORMATION
  Report Type: Spontaneous
  Country: JP (occurrence: JP)
  Receive Date: 20230406
  Receipt Date: 20230427
  Transmission Date: 20230721
  Serious: Yes (Other)
  Sender: FDA-Public Use
  Company Number: JP-LUNDBECK-DKLU3060223

PATIENT

DRUGS (1)
  1. DROXIDOPA [Suspect]
     Active Substance: DROXIDOPA
     Indication: Product used for unknown indication
     Route: 048

REACTIONS (14)
  - Hallucination, visual [Not Recovered/Not Resolved]
  - Hallucination, visual [Recovering/Resolving]
  - Parkinsonism [Not Recovered/Not Resolved]
  - Bradykinesia [Not Recovered/Not Resolved]
  - Gait disturbance [Not Recovered/Not Resolved]
  - Muscle rigidity [Recovered/Resolved with Sequelae]
  - Postural reflex impairment [Unknown]
  - Somnolence [Unknown]
  - Abulia [Unknown]
  - Dizziness postural [Unknown]
  - Persecutory delusion [Recovering/Resolving]
  - Fall [Recovering/Resolving]
  - Pollakiuria [Unknown]
  - Insomnia [Unknown]

NARRATIVE: CASE EVENT DATE: 20190401
